FAERS Safety Report 4822595-6 (Version None)
Quarter: 2005Q4

REPORT INFORMATION
  Report Type: 
  Country: None (occurrence: None)
  Receive Date: 20051108
  Receipt Date: 20051028
  Transmission Date: 20060501
  Serious: Yes (Hospitalization, Other)
  Sender: FDA-Public Use
  Company Number: 2005PK02049

PATIENT
  Age: 26092 Day
  Sex: Female
  Weight: 91 kg

DRUGS (1)
  1. ARIMIDEX [Suspect]
     Indication: BREAST CANCER
     Route: 048
     Dates: start: 20020403

REACTIONS (2)
  - CARDIAC FAILURE [None]
  - CORONARY ARTERY STENOSIS [None]
